FAERS Safety Report 21280739 (Version 1)
Quarter: 2022Q3

REPORT INFORMATION
  Report Type: Spontaneous
  Country: AU (occurrence: AU)
  Receive Date: 20220901
  Receipt Date: 20220901
  Transmission Date: 20221027
  Serious: Yes (Life-Threatening, Hospitalization, Other)
  Sender: FDA-Public Use
  Company Number: AU-PFIZER INC-PV202200054169

PATIENT
  Age: 48 Year
  Sex: Male

DRUGS (10)
  1. MYLOTARG [Suspect]
     Active Substance: GEMTUZUMAB OZOGAMICIN
     Indication: Acute myeloid leukaemia
     Dosage: 3 MG/M2, CYCLIC (DAYS 1, 4, AND 7)
     Dates: start: 202111
  2. MYLOTARG [Suspect]
     Active Substance: GEMTUZUMAB OZOGAMICIN
     Dosage: 3 MG/M2, INFUSED OVER 2 HOURS ON DAY 1
  3. MYLOTARG [Suspect]
     Active Substance: GEMTUZUMAB OZOGAMICIN
     Dosage: 3 MG/M2, INFUSED OVER 2 HOURS ON DAY 1
  4. CYTARABINE [Suspect]
     Active Substance: CYTARABINE
     Indication: Acute myeloid leukaemia
     Dosage: 7+3 (CYTARABINE + IDARUBICIN)
     Dates: start: 202111
  5. CYTARABINE [Suspect]
     Active Substance: CYTARABINE
     Dosage: 3 G/M2, CYCLIC (2X/DAY [BD] ON D 1, 3, 5)
  6. CYTARABINE [Suspect]
     Active Substance: CYTARABINE
     Dosage: 3 G/M2, CYCLIC (2X/DAY [BD] ON D 1, 3, 5)
  7. CYTARABINE [Suspect]
     Active Substance: CYTARABINE
     Dosage: 2.5 G/M2, CYCLIC (2X/DAY [BD] ON D 1, 3, 5)
  8. CYTARABINE [Suspect]
     Active Substance: CYTARABINE
     Dosage: 2.5 G/M2, CYCLIC (2X/DAY [BD] ON D 1, 3, 5)
  9. IDARUBICIN HYDROCHLORIDE [Suspect]
     Active Substance: IDARUBICIN HYDROCHLORIDE
     Indication: Acute myeloid leukaemia
     Dosage: 7+3 (CYTARABINE + IDARUBICIN)
     Dates: start: 202111
  10. INSULIN NOS [Concomitant]
     Active Substance: INSULIN NOS
     Indication: Diabetes mellitus
     Dosage: UNK (BASAL BOLUS INSULIN REGIMEN)

REACTIONS (13)
  - Febrile neutropenia [Recovered/Resolved]
  - Enterococcal bacteraemia [Unknown]
  - Haemophagocytic lymphohistiocytosis [Unknown]
  - Fungal infection [Unknown]
  - Mucosal inflammation [Unknown]
  - Liver function test abnormal [Recovering/Resolving]
  - Pyrexia [Recovering/Resolving]
  - Serum ferritin increased [Unknown]
  - Blood triglycerides abnormal [Unknown]
  - Klebsiella infection [Unknown]
  - Staphylococcal bacteraemia [Unknown]
  - Escherichia bacteraemia [Unknown]
  - Thrombocytopenia [Unknown]
